FAERS Safety Report 12053877 (Version 1)
Quarter: 2016Q1

REPORT INFORMATION
  Report Type: Spontaneous
  Country: US (occurrence: US)
  Receive Date: 20160209
  Receipt Date: 20160209
  Transmission Date: 20160526
  Serious: No
  Sender: FDA-Public Use
  Company Number: US-SA-2015SA216036

PATIENT
  Age: 80 Year
  Sex: Female

DRUGS (2)
  1. ALIROCUMAB PREFILLED PEN [Concomitant]
     Active Substance: ALIROCUMAB
     Indication: DRUG INTOLERANCE
     Dates: start: 20151102, end: 20151204
  2. PRALUENT [Suspect]
     Active Substance: ALIROCUMAB
     Indication: DRUG INTOLERANCE
     Route: 065
     Dates: start: 20151102, end: 20151204

REACTIONS (2)
  - Myalgia [Not Recovered/Not Resolved]
  - Arthralgia [Not Recovered/Not Resolved]

NARRATIVE: CASE EVENT DATE: 201511
